FAERS Safety Report 11935596 (Version 2)
Quarter: 2016Q1

REPORT INFORMATION
  Report Type: Report from Study
  Country: US (occurrence: US)
  Receive Date: 20160121
  Receipt Date: 20160127
  Transmission Date: 20160526
  Serious: Yes (Death, Hospitalization)
  Sender: FDA-Public Use
  Company Number: US-ACTELION-A-US2015-129274

PATIENT
  Age: 41 Year
  Sex: Male

DRUGS (1)
  1. VELETRI [Suspect]
     Active Substance: EPOPROSTENOL
     Indication: PULMONARY ARTERIAL HYPERTENSION
     Dosage: 22 NG/KG, PER MIN
     Route: 042
     Dates: start: 20151222, end: 20160113

REACTIONS (10)
  - Death [Fatal]
  - Respiratory failure [Unknown]
  - Drug dose omission [Unknown]
  - Device breakage [Unknown]
  - Feeling hot [Unknown]
  - Erythema [Unknown]
  - Rash [Unknown]
  - Malaise [Unknown]
  - Device infusion issue [Unknown]
  - Pain in jaw [Unknown]

NARRATIVE: CASE EVENT DATE: 20160113
